FAERS Safety Report 7970793-5 (Version None)
Quarter: 2011Q4

REPORT INFORMATION
  Report Type: 
  Country: None (occurrence: None)
  Receive Date: 20111212
  Receipt Date: 20111205
  Transmission Date: 20120403
  Serious: Yes (Hospitalization, Disabling, Other)
  Sender: FDA-Public Use
  Company Number: PHHY2011CA106848

PATIENT
  Sex: Female

DRUGS (9)
  1. MICARDIS [Concomitant]
  2. ATIVAN [Concomitant]
  3. GLUCOPHAGE [Concomitant]
  4. ASPIRIN [Concomitant]
  5. ALISKIREN [Suspect]
     Dosage: UNK UKN, UNK
  6. LYRICA [Concomitant]
  7. VITAMIN D [Concomitant]
  8. SEROQUEL [Concomitant]
  9. LIPITOR [Concomitant]

REACTIONS (4)
  - HUMERUS FRACTURE [None]
  - DIZZINESS [None]
  - FALL [None]
  - BLOOD PRESSURE INCREASED [None]
